FAERS Safety Report 6297760-4 (Version None)
Quarter: 2009Q3

REPORT INFORMATION
  Report Type: 
  Country: None (occurrence: None)
  Receive Date: 20090804
  Receipt Date: 20090804
  Transmission Date: 20100115
  Serious: No
  Sender: FDA-Public Use
  Company Number: None

PATIENT
  Age: 33 Year
  Sex: Female
  Weight: 68.0396 kg

DRUGS (1)
  1. TRAMADOL HCL [Suspect]
     Indication: MYALGIA
     Dosage: 2 TABLETS TWICE PER DAY
     Dates: start: 20090731, end: 20090731

REACTIONS (4)
  - DIZZINESS [None]
  - HEMIPARESIS [None]
  - HEMIPLEGIA [None]
  - SOMNOLENCE [None]
